FAERS Safety Report 14939568 (Version 3)
Quarter: 2018Q4

REPORT INFORMATION
  Report Type: Report from Study
  Country: DE (occurrence: DE)
  Receive Date: 20180525
  Receipt Date: 20181226
  Transmission Date: 20190204
  Serious: Yes (Hospitalization, Other)
  Sender: FDA-Public Use
  Company Number: DE-PFIZER INC-2018210239

PATIENT
  Age: 43 Year
  Sex: Female

DRUGS (7)
  1. FLUPIRTINE [Suspect]
     Active Substance: FLUPIRTINE
     Indication: BACK PAIN
     Dosage: 200 UNK, UNK
  2. MIRTAZAPINE. [Concomitant]
     Active Substance: MIRTAZAPINE
  3. TILIDIN [Concomitant]
     Active Substance: NALOXONE HYDROCHLORIDE\TILIDINE HYDROCHLORIDE
  4. SEROQUEL [Concomitant]
     Active Substance: QUETIAPINE FUMARATE
  5. TRUXAL /00012101/ [Concomitant]
     Active Substance: CHLORPROTHIXENE
  6. FLUPIRTINE [Suspect]
     Active Substance: FLUPIRTINE
     Indication: MUSCULOSKELETAL DISORDER
  7. IBUPROFEN. [Concomitant]
     Active Substance: IBUPROFEN

REACTIONS (1)
  - Drug-induced liver injury [Recovering/Resolving]
